FAERS Safety Report 19618283 (Version 1)
Quarter: 2021Q3

REPORT INFORMATION
  Report Type: Spontaneous
  Country: MX (occurrence: MX)
  Receive Date: 20210728
  Receipt Date: 20210728
  Transmission Date: 20211014
  Serious: Yes (Other)
  Sender: FDA-Public Use
  Company Number: MX-JNJFOC-20210756042

PATIENT
  Age: 85 Year
  Sex: Male
  Weight: 70 kg

DRUGS (1)
  1. XARELTO [Suspect]
     Active Substance: RIVAROXABAN
     Indication: THROMBOSIS
     Dosage: 2.5 MG, QD
     Route: 048

REACTIONS (5)
  - Hip fracture [Unknown]
  - Fall [Unknown]
  - Incorrect product administration duration [Unknown]
  - Anaemia [Unknown]
  - Nail operation [Unknown]
